FAERS Safety Report 8129279-X (Version None)
Quarter: 2012Q1

REPORT INFORMATION
  Report Type: 
  Country: None (occurrence: None)
  Receive Date: 20120210
  Receipt Date: 20111128
  Transmission Date: 20120608
  Serious: No
  Sender: FDA-Public Use
  Company Number: US-BRISTOL-MYERS SQUIBB COMPANY-16253023

PATIENT
  Age: 67 Year
  Sex: Female
  Weight: 65 kg

DRUGS (5)
  1. ORENCIA [Suspect]
     Indication: RHEUMATOID ARTHRITIS
     Route: 042
  2. PRILOSEC [Concomitant]
  3. PREDNISONE [Concomitant]
  4. GABAPENTIN [Concomitant]
  5. NAPROSYN [Concomitant]

REACTIONS (1)
  - VERTIGO POSITIONAL [None]
